FAERS Safety Report 4803716-8 (Version None)
Quarter: 2005Q4

REPORT INFORMATION
  Report Type: 
  Country: None (occurrence: None)
  Receive Date: 20051013
  Receipt Date: 20050930
  Transmission Date: 20060501
  Serious: Yes (Other)
  Sender: FDA-Public Use
  Company Number: 2005136890

PATIENT
  Sex: Female
  Weight: 37.195 kg

DRUGS (1)
  1. ZARONTIN SYRUP [Suspect]
     Indication: CONVULSION
     Dosage: 500 MG (2 IN 1 D), ORAL
     Route: 048
     Dates: start: 20010801

REACTIONS (6)
  - AGGRESSION [None]
  - CONVULSION [None]
  - DEPRESSED MOOD [None]
  - FEELING ABNORMAL [None]
  - NIGHTMARE [None]
  - RETCHING [None]
